FAERS Safety Report 9220786 (Version 3)
Quarter: 2015Q1

REPORT INFORMATION
  Report Type: Spontaneous
  Country: US (occurrence: US)
  Receive Date: 20130409
  Receipt Date: 20150325
  Transmission Date: 20150721
  Serious: No
  Sender: FDA-Public Use
  Company Number: US-009507513-1304USA002508

PATIENT
  Sex: Male

DRUGS (1)
  1. PROPECIA [Suspect]
     Active Substance: FINASTERIDE
     Indication: ANDROGENETIC ALOPECIA
     Dosage: 1 MG, UNK
     Route: 048
     Dates: start: 20030123, end: 20060105

REACTIONS (9)
  - Penile pain [Unknown]
  - Peyronie^s disease [Unknown]
  - Penis injury [Unknown]
  - Scar [Unknown]
  - Sexual dysfunction [Not Recovered/Not Resolved]
  - Genital hypoaesthesia [Unknown]
  - Libido decreased [Unknown]
  - Cognitive disorder [Not Recovered/Not Resolved]
  - Semen volume decreased [Unknown]

NARRATIVE: CASE EVENT DATE: 200508
